FAERS Safety Report 9511823 (Version 1)
Quarter: 2013Q3

REPORT INFORMATION
  Report Type: Spontaneous
  Country: US (occurrence: US)
  Receive Date: 20130910
  Receipt Date: 20130910
  Transmission Date: 20140515
  Serious: Yes (Other)
  Sender: FDA-Public Use
  Company Number: US-BAYER-2013-108262

PATIENT
  Age: 76 Year
  Sex: Male
  Weight: 92.97 kg

DRUGS (9)
  1. ALEVE CAPLET [Suspect]
     Indication: PRODUCT USED FOR UNKNOWN INDICATION
     Dosage: UNK
  2. GLIPIZIDE [Interacting]
     Dosage: 10 MG, BID
     Route: 048
  3. METFORMIN [Interacting]
     Dosage: 1000 MG, DAILY
     Route: 048
  4. ACETAMINOPHEN [Concomitant]
     Indication: ARTHRALGIA
     Dosage: DAILY
  5. SIMVASTATIN [Concomitant]
     Indication: PRODUCT USED FOR UNKNOWN INDICATION
     Dosage: 10 MG, DAILY
  6. RAMIPRIL [Concomitant]
     Indication: PRODUCT USED FOR UNKNOWN INDICATION
     Dosage: 2.5 MG, DAILY
  7. SITAGLIPTIN PHOSPHATE [Concomitant]
     Indication: PRODUCT USED FOR UNKNOWN INDICATION
     Dosage: 100 MG, DAILY
  8. BICALUTAMIDE [Concomitant]
     Indication: PRODUCT USED FOR UNKNOWN INDICATION
     Dosage: 50 MG, DAILY
  9. LEVOXYL [Concomitant]
     Dosage: 0.05 MG, DAILY
     Route: 048
     Dates: start: 2012

REACTIONS (3)
  - Prostate cancer [Unknown]
  - Bone cancer [Unknown]
  - Labelled drug-drug interaction medication error [None]
